FAERS Safety Report 13674422 (Version 3)
Quarter: 2024Q4

REPORT INFORMATION
  Report Type: Spontaneous
  Country: ES (occurrence: ES)
  Receive Date: 20170621
  Receipt Date: 20241128
  Transmission Date: 20250115
  Serious: Yes (Death)
  Sender: BIOGEN
  Company Number: ES-BIOGEN-2017BI00410574

PATIENT
  Age: 60 Year
  Sex: Male

DRUGS (7)
  1. TECFIDERA [Suspect]
     Active Substance: DIMETHYL FUMARATE
     Indication: Multiple sclerosis
     Dosage: TITRATION DOSE
     Route: 050
  2. TECFIDERA [Suspect]
     Active Substance: DIMETHYL FUMARATE
     Route: 050
  3. TECFIDERA [Suspect]
     Active Substance: DIMETHYL FUMARATE
     Dosage: TITRATION OF 120 MG AND 240 MG IN A DAY
     Route: 050
  4. TECFIDERA [Suspect]
     Active Substance: DIMETHYL FUMARATE
     Dosage: TITRATION OF 120 MG AND 240 MG IN A DAY
     Route: 050
  5. TECFIDERA [Suspect]
     Active Substance: DIMETHYL FUMARATE
     Route: 050
     Dates: end: 201608
  6. TECFIDERA [Suspect]
     Active Substance: DIMETHYL FUMARATE
     Dosage: DOSAGE UNIT FREQUENCY: 240 MG-MILLIGRAMS || DOSAGE PER DOSE: 240 MG MILLIGRAMS
     Route: 050
  7. VORTIOXETINE [Concomitant]
     Active Substance: VORTIOXETINE
     Indication: Product used for unknown indication
     Route: 050

REACTIONS (4)
  - Completed suicide [Fatal]
  - Lymphopenia [Fatal]
  - Multiple sclerosis relapse [Unknown]
  - Prescribed underdose [Recovered/Resolved]

NARRATIVE: CASE EVENT DATE: 20160801
